FAERS Safety Report 8439318 (Version 2)
Quarter: 2013Q2

REPORT INFORMATION
  Report Type: Spontaneous
  Country: US (occurrence: None)
  Receive Date: 20120104
  Receipt Date: 20120508
  Transmission Date: 20140414
  Serious: No
  Sender: FDA-Public Use
  Company Number: 2011HGS-002772

PATIENT
  Age: 41 Year
  Sex: Female
  Weight: 58.97 kg

DRUGS (9)
  1. BENLYSTA [Suspect]
     Indication: SYSTEMIC LUPUS ERYTHEMATOSUS
     Route: 041
     Dates: start: 20110628
  2. IMURAN (AZATHIORPINE) [Concomitant]
  3. PREDNISONE (PREDNISONE) [Concomitant]
  4. CELEXA [Concomitant]
  5. GABAPENTIN (GABAPENTIN) [Concomitant]
  6. AMBIEN [Concomitant]
  7. ZOCOR (SIMVASTATIN) (SIMVASTATIN) [Concomitant]
  8. CALCIUM WITH VITAMIN D (CALCIUM WITH VITAMIN D /01233101/) (ERGOCALCIFEROL, CALCIUM PHOSPHATE, CALCIUM SODIUM LACTATE) [Concomitant]
  9. VITAMIN D (ERGOCALCIFEROL) (ERGOCALCIFEROL) [Concomitant]

REACTIONS (4)
  - FATIGUE [None]
  - NO THERAPEUTIC RESPONSE [None]
  - Pain [None]
  - Myalgia [None]
